FAERS Safety Report 4294059-2 (Version None)
Quarter: 2004Q1

REPORT INFORMATION
  Report Type: 
  Country: None (occurrence: None)
  Receive Date: 20040211
  Receipt Date: 20040127
  Transmission Date: 20041129
  Serious: Yes (Other)
  Sender: FDA-Public Use
  Company Number: GBS040114246

PATIENT
  Age: 42 Year
  Sex: Female

DRUGS (1)
  1. VANCOMYCIN [Suspect]
     Indication: PROPHYLAXIS
     Dosage: 1 G/DAY
     Dates: start: 20031201

REACTIONS (5)
  - DEAFNESS [None]
  - ERYTHEMA [None]
  - HEADACHE [None]
  - OTOTOXICITY [None]
  - VASODILATATION [None]
